FAERS Safety Report 25883358 (Version 2)
Quarter: 2025Q4

REPORT INFORMATION
  Report Type: Spontaneous
  Country: AU (occurrence: AU)
  Receive Date: 20251006
  Receipt Date: 20251015
  Transmission Date: 20260117
  Serious: Yes (Other)
  Sender: ALEXION PHARMACEUTICALS
  Company Number: AU-MSP VACCINE-MCM-008183

PATIENT
  Age: 4 Month
  Sex: Male

DRUGS (7)
  1. NIRSEVIMAB [Suspect]
     Active Substance: NIRSEVIMAB
     Indication: Prophylaxis
     Dosage: UNK
     Route: 065
  2. VAXELIS [Suspect]
     Active Substance: DIPHTHERIA AND TETANUS TOXOIDS AND ACELLULAR PERTUSSIS ADSORBED, INACTIVATED POLIOVIRUS AND HAEMOPHI
     Indication: Prophylaxis
     Dosage: UNK
     Route: 065
  3. VAXELIS [Suspect]
     Active Substance: DIPHTHERIA AND TETANUS TOXOIDS AND ACELLULAR PERTUSSIS ADSORBED, INACTIVATED POLIOVIRUS AND HAEMOPHI
     Indication: Immunisation
     Dosage: UNK
  4. PREVNAR 13 [Suspect]
     Active Substance: STREPTOCOCCUS PNEUMONIAE TYPE 1 CAPSULAR POLYSACCHARIDE DIPHTHERIA CRM197 PROTEIN CONJUGATE ANTIGEN\
     Indication: Prophylaxis
     Dosage: UNK
     Route: 065
  5. PREVNAR 13 [Suspect]
     Active Substance: STREPTOCOCCUS PNEUMONIAE TYPE 1 CAPSULAR POLYSACCHARIDE DIPHTHERIA CRM197 PROTEIN CONJUGATE ANTIGEN\
     Indication: Immunisation
     Dosage: UNK
     Route: 065
  6. ROTARIX [Suspect]
     Active Substance: HUMAN ROTAVIRUS A TYPE G1P(8) STRAIN RIX4414 LIVE ANTIGEN
     Indication: Prophylaxis
     Dosage: UNK
     Route: 065
  7. ROTARIX [Suspect]
     Active Substance: HUMAN ROTAVIRUS A TYPE G1P(8) STRAIN RIX4414 LIVE ANTIGEN
     Indication: Immunisation
     Dosage: UNK
     Route: 065

REACTIONS (18)
  - Acute hepatic failure [Unknown]
  - Ascites [Unknown]
  - Hepatitis [Unknown]
  - Hyperbilirubinaemia [Unknown]
  - Immune thrombocytopenia [Unknown]
  - Myelosuppression [Unknown]
  - Anaemia [Unknown]
  - Coagulopathy [Unknown]
  - Hepatosplenomegaly [Unknown]
  - Jaundice [Unknown]
  - Petechiae [Unknown]
  - Oedema [Unknown]
  - Diarrhoea [Unknown]
  - Blood glucose decreased [Unknown]
  - Ammonia increased [Unknown]
  - Blood lactic acid increased [Unknown]
  - Cytomegalovirus test positive [Unknown]
  - Transaminases increased [Unknown]
